FAERS Safety Report 7625355-6 (Version None)
Quarter: 2011Q3

REPORT INFORMATION
  Report Type: 
  Country: None (occurrence: None)
  Receive Date: 20110721
  Receipt Date: 20110713
  Transmission Date: 20111222
  Serious: Yes (Congenital Anomaly, Other)
  Sender: FDA-Public Use
  Company Number: US-BAYER-2011-011705

PATIENT
  Sex: Female
  Weight: 3.628 kg

DRUGS (4)
  1. BETASERON [Suspect]
     Dosage: UNK
     Route: 064
  2. LAMOTRIGINE [Concomitant]
  3. BETASERON [Suspect]
     Dosage: UNK
     Route: 064
  4. LAMOTRIGINE [Concomitant]

REACTIONS (2)
  - CAFE AU LAIT SPOTS [None]
  - NEUROFIBROMATOSIS [None]
